FAERS Safety Report 13064116 (Version 2)
Quarter: 2017Q1

REPORT INFORMATION
  Report Type: Report from Study
  Country: US (occurrence: US)
  Receive Date: 20161227
  Receipt Date: 20170106
  Transmission Date: 20170428
  Serious: Yes (Other)
  Sender: FDA-Public Use
  Company Number: US-CORCEPT THERAPEUTICS INC.-US-2016CRT000752

PATIENT

DRUGS (5)
  1. LEVAQUIN [Concomitant]
     Active Substance: LEVOFLOXACIN
     Indication: LUNG INFECTION
     Dosage: UNK
  2. ZITHROMAX [Concomitant]
     Active Substance: AZITHROMYCIN DIHYDRATE
     Indication: LUNG INFECTION
     Dosage: UNK
  3. KORLYM [Suspect]
     Active Substance: MIFEPRISTONE
     Indication: CUSHING^S SYNDROME
     Dosage: 300 MG, QD
     Route: 048
     Dates: start: 20161025, end: 20161106
  4. KORLYM [Suspect]
     Active Substance: MIFEPRISTONE
     Indication: BLOOD TEST ABNORMAL
  5. KORLYM [Suspect]
     Active Substance: MIFEPRISTONE
     Indication: IMPAIRED FASTING GLUCOSE
     Dosage: 600 MG, QD
     Route: 048
     Dates: start: 20161107, end: 20161121

REACTIONS (16)
  - Dementia [Unknown]
  - Pain in extremity [Recovering/Resolving]
  - Muscular weakness [Recovering/Resolving]
  - Back pain [Recovering/Resolving]
  - Fatigue [Recovering/Resolving]
  - Cough [Recovering/Resolving]
  - Dyspnoea [Not Recovered/Not Resolved]
  - Asthenia [Recovering/Resolving]
  - Chronic obstructive pulmonary disease [Unknown]
  - Asthma [Unknown]
  - Pulmonary congestion [Recovering/Resolving]
  - Influenza like illness [Unknown]
  - Lethargy [Recovering/Resolving]
  - Respiratory disorder [Unknown]
  - Mental impairment [Unknown]
  - Malaise [Recovering/Resolving]

NARRATIVE: CASE EVENT DATE: 2016
